FAERS Safety Report 17866866 (Version 2)
Quarter: 2020Q4

REPORT INFORMATION
  Report Type: Report from Study
  Country: FR (occurrence: FR)
  Receive Date: 20200605
  Receipt Date: 20201203
  Transmission Date: 20210113
  Serious: Yes (Death)
  Sender: FDA-Public Use
  Company Number: FR-PFIZER INC-2020218389

PATIENT

DRUGS (4)
  1. VITAMIN B12 + FOLIC ACID [Concomitant]
     Active Substance: CYANOCOBALAMIN\FOLIC ACID
     Dosage: UNK
  2. CARBOPLATIN. [Suspect]
     Active Substance: CARBOPLATIN
     Indication: NON-SMALL CELL LUNG CANCER
     Dosage: 5 MG/ML,CYCLIC (UNDER THE CURVE VALUE OF 5 MG ML-1 MIN-1,29 ON DAY 1 FOR A MAXIMUM OF FOUR CYCLES)
     Route: 040
  3. PREDNISONE. [Concomitant]
     Active Substance: PREDNISONE
     Dosage: 20 MG, 2X/DAY (FOR 3 DAYS WAS ROUTINELY ADMINISTERED)
  4. PEMETREXED. [Suspect]
     Active Substance: PEMETREXED
     Indication: NON-SMALL CELL LUNG CANCER
     Dosage: 500 MG/M2, EVERY 3 WEEKS (BOLUS INFUSED IN 10 MINUTES)
     Route: 040

REACTIONS (1)
  - Sepsis [Fatal]
